FAERS Safety Report 8815528 (Version 1)
Quarter: 2012Q4

REPORT INFORMATION
  Report Type: 
  Country: US (occurrence: US)
  Receive Date: 20120928
  Receipt Date: 20120928
  Transmission Date: 20130627
  Serious: Yes (Hospitalization, Disabling, Other)
  Sender: FDA-Public Use
  Company Number: US-009507513-1107USA03607

PATIENT

DRUGS (16)
  1. FOSAMAX [Suspect]
     Indication: OSTEOPENIA
     Dosage: 10 mg, qd
     Route: 048
     Dates: start: 199512, end: 199805
  2. FOSAMAX [Suspect]
     Indication: OSTEOPOROSIS
     Dosage: 10 mg, qd
     Route: 048
     Dates: start: 1996, end: 2005
  3. FOSAMAX [Suspect]
     Dosage: 70 mg, QW
     Route: 048
     Dates: start: 200507
  4. PLAQUENIL [Concomitant]
     Indication: SYSTEMIC LUPUS ERYTHEMATOSUS
     Dosage: 100 mg, UNK
     Dates: start: 1985
  5. PLAQUENIL [Concomitant]
     Indication: SJOGREN^S SYNDROME
  6. METICORTEN [Concomitant]
     Indication: SYSTEMIC LUPUS ERYTHEMATOSUS
     Dates: start: 1985
  7. METICORTEN [Concomitant]
     Indication: SJOGREN^S SYNDROME
  8. FOSAMAX D [Suspect]
     Indication: OSTEOPOROSIS
     Dosage: 70 mg, QW
     Route: 048
     Dates: start: 1996, end: 2005
  9. FOSAMAX D [Suspect]
     Dosage: 70 mg, QW
     Route: 048
     Dates: start: 20070716, end: 201007
  10. CALCIUM (UNSPECIFIED) [Concomitant]
     Dates: start: 1984
  11. DIDRONEL [Concomitant]
     Dates: start: 1993, end: 199512
  12. THERAPY UNSPECIFIED [Concomitant]
     Indication: RHEUMATOID ARTHRITIS
  13. PREMARIN [Concomitant]
     Dates: start: 1974
  14. FOSAMAX [Suspect]
     Dosage: 70 mg, UNK
     Route: 048
     Dates: start: 20090923
  15. ALENDRONATE SODIUM [Suspect]
     Indication: OSTEOPENIA
     Dosage: 70 mg, UNK
     Dates: start: 20081106, end: 20100401
  16. ALENDRONATE SODIUM [Suspect]
     Indication: OSTEOPOROSIS

REACTIONS (89)
  - Internal fixation of fracture [Unknown]
  - Femur fracture [Unknown]
  - Hip arthroplasty [Unknown]
  - Cardiac disorder [Unknown]
  - Depression [Not Recovered/Not Resolved]
  - Anaemia vitamin B12 deficiency [Unknown]
  - Hyponatraemia [Unknown]
  - Respiratory failure [Unknown]
  - Hyperkalaemia [Unknown]
  - Renal tubular necrosis [Unknown]
  - Hypotension [Unknown]
  - Pneumonia [Unknown]
  - Renal failure acute [Unknown]
  - Sepsis [Unknown]
  - Femur fracture [Unknown]
  - Arteriosclerosis coronary artery [Unknown]
  - Vitamin B12 deficiency [Unknown]
  - Pneumonia [Unknown]
  - Fall [Unknown]
  - Pneumonia [Unknown]
  - Fall [Unknown]
  - Fall [Unknown]
  - Rib fracture [Unknown]
  - Spinal fracture [Recovered/Resolved]
  - Carotid artery disease [Unknown]
  - Gallbladder disorder [Unknown]
  - Appendix disorder [Unknown]
  - Pneumonia [Unknown]
  - Haemorrhagic stroke [Unknown]
  - Transient ischaemic attack [Unknown]
  - Lacunar infarction [Unknown]
  - Carotid artery stenosis [Unknown]
  - Cerebrovascular accident [Unknown]
  - Pulmonary embolism [Unknown]
  - Back pain [Unknown]
  - Femur fracture [Recovered/Resolved]
  - Anxiety [Unknown]
  - Fall [Unknown]
  - Hypertension [Unknown]
  - Asthma [Not Recovered/Not Resolved]
  - Blood cholesterol increased [Unknown]
  - Nervousness [Unknown]
  - Diabetes mellitus [Unknown]
  - Impaired healing [Unknown]
  - Mental disorder [Unknown]
  - Angina pectoris [Unknown]
  - Emphysema [Unknown]
  - Osteoarthritis [Unknown]
  - Ligament sprain [Unknown]
  - Aortic aneurysm [Unknown]
  - Weight decreased [Unknown]
  - Increased tendency to bruise [Unknown]
  - Initial insomnia [Unknown]
  - Bursitis [Unknown]
  - Hyperlipidaemia [Unknown]
  - Nephrolithiasis [Unknown]
  - Chronic obstructive pulmonary disease [Unknown]
  - Iodine allergy [Unknown]
  - Cataract [Unknown]
  - Neuropathy peripheral [Unknown]
  - Fatigue [Unknown]
  - Cardiac murmur [Unknown]
  - Pain [Unknown]
  - Arthritis [Unknown]
  - Mental disorder [Unknown]
  - Ulcer [Unknown]
  - Haemorrhoids [Unknown]
  - Diverticulum [Unknown]
  - Fall [Unknown]
  - Rib fracture [Unknown]
  - Discomfort [Unknown]
  - Syncope [Unknown]
  - Cough [Unknown]
  - Cystitis [Unknown]
  - Ventricular tachycardia [Recovered/Resolved]
  - Acquired oesophageal web [Unknown]
  - Gait disturbance [Unknown]
  - Hiatus hernia [Unknown]
  - Photosensitivity reaction [Unknown]
  - Pyrexia [Unknown]
  - Drug hypersensitivity [Unknown]
  - Gastrooesophageal reflux disease [Unknown]
  - Headache [Unknown]
  - Rash [Unknown]
  - Mouth ulceration [Unknown]
  - Musculoskeletal chest pain [Unknown]
  - Gastritis [Unknown]
  - Oesophagitis [Unknown]
  - Dysphagia [Unknown]
